FAERS Safety Report 18733576 (Version 2)
Quarter: 2021Q1

REPORT INFORMATION
  Report Type: Report from Study
  Country: BR (occurrence: BR)
  Receive Date: 20210113
  Receipt Date: 20210226
  Transmission Date: 20210419
  Serious: Yes (Hospitalization, Other)
  Sender: FDA-Public Use
  Company Number: BR-UCBSA-2021000622

PATIENT
  Age: 43 Year
  Sex: Female
  Weight: 70 kg

DRUGS (3)
  1. CERTOLIZUMAB PEGOL [Suspect]
     Active Substance: CERTOLIZUMAB PEGOL
     Indication: RHEUMATOID ARTHRITIS
     Dosage: UNK, MONTHLY (QM)
     Route: 058
     Dates: start: 202011, end: 202012
  2. TIMOLOL. [Concomitant]
     Active Substance: TIMOLOL
     Indication: GLAUCOMA
     Dosage: ONCE A DAY
  3. VIGADEXA [DEXAMETHASONE PHOSPHATE;MOXIFLOXACIN HYDROCHLORIDE] [Concomitant]
     Indication: GLAUCOMA
     Dosage: ONCE A DAY
     Dates: start: 202010

REACTIONS (8)
  - Vomiting [Recovered/Resolved]
  - Malaise [Recovered/Resolved]
  - Hepatic infection [Recovered/Resolved]
  - Nephrolithiasis [Recovered/Resolved]
  - Faeces discoloured [Recovered/Resolved]
  - Calculus bladder [Recovered/Resolved]
  - Joint stiffness [Not Recovered/Not Resolved]
  - Chromaturia [Recovered/Resolved]

NARRATIVE: CASE EVENT DATE: 20201222
